FAERS Safety Report 4735082-0 (Version None)
Quarter: 2005Q3

REPORT INFORMATION
  Report Type: 
  Country: None (occurrence: None)
  Receive Date: 20050804
  Receipt Date: 20050427
  Transmission Date: 20060218
  Serious: Yes (Other)
  Sender: FDA-Public Use
  Company Number: US-MERCK-0505USA00257

PATIENT
  Age: 58 Year
  Sex: Female
  Weight: 66 kg

DRUGS (3)
  1. VIOXX [Suspect]
     Indication: EPICONDYLITIS
     Route: 048
     Dates: start: 20010301, end: 20030801
  2. VIOXX [Suspect]
     Indication: OSTEOARTHRITIS
     Route: 048
     Dates: start: 20010301, end: 20030801
  3. PREMARIN [Concomitant]
     Route: 065
     Dates: start: 19760601

REACTIONS (7)
  - AMNESIA [None]
  - BLOOD CHOLESTEROL INCREASED [None]
  - FATIGUE [None]
  - GASTROOESOPHAGEAL REFLUX DISEASE [None]
  - HOT FLUSH [None]
  - MYOCARDIAL INFARCTION [None]
  - PULMONARY EMBOLISM [None]
